FAERS Safety Report 8790989 (Version 1)
Quarter: 2012Q4

REPORT INFORMATION
  Report Type: Spontaneous
  Country: US (occurrence: None)
  Receive Date: 20120910
  Receipt Date: 20120910
  Transmission Date: 20130627
  Serious: Yes (Other)
  Sender: FDA-Public Use
  Company Number: C2012-772-1274

PATIENT
  Age: 45 Year
  Sex: Female
  Weight: 71.49 kg

DRUGS (1)
  1. AMPICILLIN [Suspect]
     Indication: STREPTOCOCCAL SORE THROAT
     Dates: start: 20120904

REACTIONS (3)
  - Injection site pain [None]
  - Cold sweat [None]
  - Asthenia [None]
